FAERS Safety Report 8505547 (Version 4)
Quarter: 2013Q1

REPORT INFORMATION
  Report Type: Spontaneous
  Country: GB (occurrence: None)
  Receive Date: 20120405
  Receipt Date: 20121108
  Transmission Date: 20140127
  Serious: Yes (Hospitalization)
  Sender: FDA-Public Use
  Company Number: GER/UKI/12/0023695

PATIENT
  Age: 37 Year
  Sex: Male

DRUGS (5)
  1. OMEPRAZOLE [Suspect]
     Indication: GASTROINTESTINAL DISORDER
     Dosage: 20 MG, 1 IN 1 D, ORAL
     Route: 048
     Dates: start: 20110427
  2. QUETIAPINE FUMARATE [Concomitant]
  3. TRIMETHIPRIM (TRIMETHOPRIM) [Concomitant]
  4. DOXYCYCLINE [Concomitant]
  5. LAXIDO (LAXIDO) [Concomitant]

REACTIONS (20)
  - Nausea [None]
  - Gastric disorder [None]
  - Vomiting [None]
  - Pyrexia [None]
  - Temperature regulation disorder [None]
  - Photosensitivity reaction [None]
  - Anaemia [None]
  - Hair colour changes [None]
  - Dry skin [None]
  - Anxiety [None]
  - Hyperchlorhydria [None]
  - Dental caries [None]
  - Pain [None]
  - Ocular icterus [None]
  - Gastric polyps [None]
  - Abdominal distension [None]
  - Dehydration [None]
  - Nail disorder [None]
  - Impaired healing [None]
  - Skin discolouration [None]
